FAERS Safety Report 25047219 (Version 1)
Quarter: 2025Q1

REPORT INFORMATION
  Report Type: Other
  Country: CN (occurrence: None)
  Receive Date: 20250306
  Receipt Date: 20250306
  Transmission Date: 20250408
  Serious: Yes (Hospitalization)
  Sender: INCYTE
  Company Number: CN-002147023-NVSC2025CN035556

PATIENT
  Age: 36 Year

DRUGS (1)
  1. RUXOLITINIB [Suspect]
     Active Substance: RUXOLITINIB
     Indication: Targeted cancer therapy
     Dosage: 5 MG, QD

REACTIONS (1)
  - Platelet count decreased [Recovering/Resolving]
